FAERS Safety Report 8872742 (Version 1)
Quarter: 2012Q4

REPORT INFORMATION
  Report Type: Spontaneous
  Country: US (occurrence: None)
  Receive Date: 20121026
  Receipt Date: 20121026
  Transmission Date: 20130627
  Serious: No
  Sender: FDA-Public Use
  Company Number: None

PATIENT
  Age: 76 Year
  Sex: Male
  Weight: 99.1 kg

DRUGS (2)
  1. LISINOPRIL [Suspect]
     Dosage: 20 MG EVERY DAY PO
     Route: 048
     Dates: start: 20110711, end: 20120514
  2. SPIRONOLACTONE [Suspect]
     Dosage: 25 MG EVERY DAY PO
     Route: 048
     Dates: start: 20100722, end: 20120514

REACTIONS (1)
  - Hyperkalaemia [None]
